FAERS Safety Report 9110810 (Version 1)
Quarter: 2013Q1

REPORT INFORMATION
  Report Type: Spontaneous
  Country: US (occurrence: US)
  Receive Date: 20130219
  Receipt Date: 20130219
  Transmission Date: 20140127
  Serious: No
  Sender: FDA-Public Use
  Company Number: US-BRISTOL-MYERS SQUIBB COMPANY-16755373

PATIENT
  Age: 4 Decade
  Sex: Female

DRUGS (2)
  1. ORENCIA [Suspect]
     Indication: RHEUMATOID ARTHRITIS
     Dosage: PREVIOUSLY TOOK IV ROUTE APR12
     Route: 058
  2. INSULIN [Concomitant]

REACTIONS (1)
  - Blood glucose decreased [Not Recovered/Not Resolved]
